FAERS Safety Report 20653163 (Version 20)
Quarter: 2022Q3

REPORT INFORMATION
  Report Type: Report from Study
  Country: CN (occurrence: None)
  Receive Date: 20220330
  Receipt Date: 20220902
  Transmission Date: 20221027
  Serious: Yes (Hospitalization)
  Sender: FDA-Public Use
  Company Number: CN-Eisai Medical Research-EC-2022-111727

PATIENT
  Age: 65 Year
  Sex: Male
  Weight: 69 kg

DRUGS (25)
  1. LENVATINIB [Suspect]
     Active Substance: LENVATINIB
     Indication: Adenocarcinoma gastric
     Route: 048
     Dates: start: 20220301, end: 20220411
  2. LENVATINIB [Suspect]
     Active Substance: LENVATINIB
     Indication: Oesophageal adenocarcinoma
  3. PEMBROLIZUMAB [Suspect]
     Active Substance: PEMBROLIZUMAB
     Indication: Adenocarcinoma gastric
     Route: 041
     Dates: start: 20220301, end: 20220301
  4. PEMBROLIZUMAB [Suspect]
     Active Substance: PEMBROLIZUMAB
     Indication: Oesophageal adenocarcinoma
     Route: 041
     Dates: start: 20220519
  5. OXALIPLATIN [Suspect]
     Active Substance: OXALIPLATIN
     Indication: Adenocarcinoma gastric
     Dosage: UNKNOWN DOSE
     Route: 042
     Dates: start: 20220301, end: 20220301
  6. OXALIPLATIN [Suspect]
     Active Substance: OXALIPLATIN
     Indication: Oesophageal adenocarcinoma
     Dosage: UNKNOWN DOSE
     Route: 042
     Dates: start: 20220322, end: 20220322
  7. OXALIPLATIN [Suspect]
     Active Substance: OXALIPLATIN
     Dosage: UNKNOWN DOSE
     Route: 042
     Dates: start: 20220519, end: 20220609
  8. CAPECITABINE [Suspect]
     Active Substance: CAPECITABINE
     Indication: Adenocarcinoma gastric
     Dosage: UNKNOWN DOSE, BID FOR 14 DAYS
     Route: 048
     Dates: start: 20220301, end: 20220301
  9. CAPECITABINE [Suspect]
     Active Substance: CAPECITABINE
     Indication: Oesophageal adenocarcinoma
     Dosage: UNKNOWN DOSE, BID FOR 14 DAYS
     Route: 048
     Dates: start: 20220302, end: 20220405
  10. CAPECITABINE [Suspect]
     Active Substance: CAPECITABINE
     Dosage: UNKNOWN DOSE, BID FOR 14 DAYS
     Route: 048
     Dates: start: 20220520, end: 20220623
  11. TELMISARTAN [Concomitant]
     Active Substance: TELMISARTAN
     Dates: start: 201701, end: 20220303
  12. INDAPAMIDE [Concomitant]
     Active Substance: INDAPAMIDE
     Dates: start: 201701, end: 20220303
  13. CALCIUM CARBONATE\CHOLECALCIFEROL [Concomitant]
     Active Substance: CALCIUM CARBONATE\CHOLECALCIFEROL
     Dates: start: 202101
  14. CELECOXIB [Concomitant]
     Active Substance: CELECOXIB
     Dates: start: 20220210
  15. OMEPRAZOLE SODIUM [Concomitant]
     Active Substance: OMEPRAZOLE SODIUM
     Route: 042
     Dates: start: 20220223
  16. PINAVERIUM BROMIDE [Concomitant]
     Active Substance: PINAVERIUM BROMIDE
     Dates: start: 20220224, end: 20220226
  17. LACTULOSE [Concomitant]
     Active Substance: LACTULOSE
     Dates: start: 20220226, end: 20220318
  18. LIDOCAINE HYDROCHLORIDE [Concomitant]
     Active Substance: LIDOCAINE HYDROCHLORIDE
     Dates: start: 20220223, end: 20220223
  19. GLYCERIN [Concomitant]
     Active Substance: GLYCERIN
     Dates: start: 20220227, end: 20220227
  20. DIMETHICONE [Concomitant]
     Active Substance: DIMETHICONE
     Dates: start: 20220227, end: 20220301
  21. INDOMETHACIN [Concomitant]
     Active Substance: INDOMETHACIN
     Dates: start: 20220301, end: 20220301
  22. FOSAPREPITANT DIMEGLUMINE [Concomitant]
     Active Substance: FOSAPREPITANT DIMEGLUMINE
     Route: 042
     Dates: start: 20220301, end: 20220301
  23. PALONOSETRON HYDROCHLORIDE [Concomitant]
     Active Substance: PALONOSETRON HYDROCHLORIDE
     Route: 042
     Dates: start: 20220301, end: 20220308
  24. OMEPRAZOLE [Concomitant]
     Active Substance: OMEPRAZOLE
     Dates: start: 20220302, end: 20220307
  25. MEGESTROL ACETATE [Concomitant]
     Active Substance: MEGESTROL ACETATE
     Dates: start: 20220302, end: 20220310

REACTIONS (2)
  - Gastrointestinal perforation [Recovered/Resolved]
  - Decreased appetite [Recovered/Resolved]

NARRATIVE: CASE EVENT DATE: 20220305
